FAERS Safety Report 12178882 (Version 1)
Quarter: 2016Q1

REPORT INFORMATION
  Report Type: Spontaneous
  Country: US (occurrence: None)
  Receive Date: 20160314
  Receipt Date: 20160314
  Transmission Date: 20160526
  Serious: No
  Sender: FDA-Public Use
  Company Number: None

PATIENT
  Age: 25 Year
  Sex: Female
  Weight: 61.24 kg

DRUGS (2)
  1. IMMETREX [Concomitant]
  2. TOPAMAX [Suspect]
     Active Substance: TOPIRAMATE
     Indication: MIGRAINE
     Dosage: 2 PILLS AT BEDTIME TAKEN BY MOUTH
     Route: 048
     Dates: start: 20160205, end: 20160217

REACTIONS (13)
  - Logorrhoea [None]
  - Balance disorder [None]
  - Vomiting [None]
  - Paraesthesia oral [None]
  - Agitation [None]
  - Asthenia [None]
  - Paraesthesia [None]
  - Disturbance in attention [None]
  - Hypoaesthesia [None]
  - Fear of death [None]
  - Fatigue [None]
  - Chills [None]
  - Depression [None]

NARRATIVE: CASE EVENT DATE: 20160213
